FAERS Safety Report 4829936-4 (Version None)
Quarter: 2005Q4

REPORT INFORMATION
  Report Type: 
  Country: None (occurrence: None)
  Receive Date: 20051115
  Receipt Date: 20051103
  Transmission Date: 20060501
  Serious: Yes (Hospitalization)
  Sender: FDA-Public Use
  Company Number: 2005RR-01070

PATIENT
  Age: 34 Year
  Sex: Male

DRUGS (2)
  1. IBUPROFEN [Suspect]
     Indication: BACK PAIN
     Dosage: 400 MG, PRN, ORAL
     Route: 048
     Dates: start: 20000101, end: 20051001
  2. PARACETAMOL TABLETS BP 500MG (PARACETAMOL) [Concomitant]

REACTIONS (1)
  - PEPTIC ULCER HAEMORRHAGE [None]
